FAERS Safety Report 10454291 (Version 1)
Quarter: 2014Q3

REPORT INFORMATION
  Report Type: Spontaneous
  Country: IT (occurrence: IT)
  Receive Date: 20140915
  Receipt Date: 20140915
  Transmission Date: 20150326
  Serious: Yes (Death, Other)
  Sender: FDA-Public Use
  Company Number: PHHY2014IT117336

PATIENT
  Age: 74 Year

DRUGS (1)
  1. IMATINIB [Suspect]
     Active Substance: IMATINIB
     Indication: ACUTE LYMPHOCYTIC LEUKAEMIA

REACTIONS (4)
  - Acute pulmonary oedema [Fatal]
  - Toxicity to various agents [Unknown]
  - Acute lymphocytic leukaemia recurrent [Unknown]
  - Drug resistance [Unknown]
